FAERS Safety Report 11688633 (Version 1)
Quarter: 2015Q4

REPORT INFORMATION
  Report Type: Spontaneous
  Country: KR (occurrence: KR)
  Receive Date: 20151102
  Receipt Date: 20151102
  Transmission Date: 20160304
  Serious: Yes (Hospitalization)
  Sender: FDA-Public Use
  Company Number: KR-AMGEN-KORCT2015114936

PATIENT
  Age: 42 Year
  Sex: Female
  Weight: 62 kg

DRUGS (42)
  1. G-LASTA [Suspect]
     Active Substance: PEGFILGRASTIM
     Indication: FEBRILE NEUTROPENIA
     Dosage: 6 MG, 1X/3WEEKS
     Route: 058
     Dates: start: 20150410
  2. G-LASTA [Suspect]
     Active Substance: PEGFILGRASTIM
     Dosage: 6 MG, 1X/3WEEKS
     Route: 058
     Dates: start: 20150501
  3. G-LASTA [Suspect]
     Active Substance: PEGFILGRASTIM
     Dosage: 6 MG, 1X/3WEEKS
     Route: 058
     Dates: start: 20150709
  4. MAGMIL [Concomitant]
     Active Substance: MAGNESIUM HYDROXIDE
     Dosage: 500 MG, UNK
     Route: 048
     Dates: start: 20150702
  5. MECOOL [Concomitant]
     Dosage: 10 MG, UNK
     Route: 042
     Dates: start: 20150503, end: 20150505
  6. TATHION [Concomitant]
     Dosage: 100 MG, UNK
     Route: 042
     Dates: start: 20150506, end: 20150509
  7. ULTRACET [Concomitant]
     Active Substance: ACETAMINOPHEN\TRAMADOL HYDROCHLORIDE
     Dosage: 1T
     Route: 048
     Dates: start: 20150614
  8. ANTIBIO [Concomitant]
     Dosage: 300 MG, UNK
     Route: 048
     Dates: start: 20150416, end: 20150504
  9. RABIET [Concomitant]
     Dosage: 20 MG, UNK
     Route: 048
     Dates: start: 20150613, end: 20150625
  10. DOCETAXEL. [Concomitant]
     Active Substance: DOCETAXEL
     Dosage: 112.2 MG, UNK
     Route: 042
     Dates: start: 20150708, end: 20150708
  11. CYCLOPHOSPHAMIDE. [Concomitant]
     Active Substance: CYCLOPHOSPHAMIDE
     Dosage: 860 MG, UNK
     Route: 042
     Dates: start: 20150409, end: 20150409
  12. GABAPENTIN. [Concomitant]
     Active Substance: GABAPENTIN
     Dosage: 100 MG, UNK
     Route: 048
     Dates: start: 20150409
  13. DENOGAN [Concomitant]
     Dosage: 1 G, UNK
     Route: 042
     Dates: start: 20150503, end: 20150505
  14. DENOGAN [Concomitant]
     Dosage: 1 G, UNK
     Route: 042
     Dates: start: 20150505, end: 20150505
  15. PRIVITUSS [Concomitant]
     Dosage: 8 ML, UNK
     Route: 048
     Dates: end: 20150521
  16. CYCLOPHOSPHAMIDE. [Concomitant]
     Active Substance: CYCLOPHOSPHAMIDE
     Dosage: 850 MG, UNK
     Route: 042
     Dates: start: 20150430, end: 20150430
  17. CYCLOPHOSPHAMIDE. [Concomitant]
     Active Substance: CYCLOPHOSPHAMIDE
     Dosage: 735.25 MG, UNK
     Route: 042
     Dates: start: 20150611, end: 20150611
  18. CYCLOPHOSPHAMIDE. [Concomitant]
     Active Substance: CYCLOPHOSPHAMIDE
     Dosage: 748 MG, UNK
     Route: 042
     Dates: start: 20150708, end: 20150708
  19. ZIPAN                              /00033002/ [Concomitant]
     Dosage: 50 MG, UNK
     Route: 042
     Dates: end: 20150507
  20. MEGACE [Concomitant]
     Active Substance: MEGESTROL ACETATE
     Dosage: 10 ML, UNK
     Route: 048
     Dates: start: 20150430, end: 20150506
  21. TROLAC [Concomitant]
     Dosage: 30 MG, UNK
     Route: 042
     Dates: start: 20150506, end: 20150507
  22. DOXORUBICIN [Concomitant]
     Active Substance: DOXORUBICIN
     Dosage: 86 MG, UNK
     Route: 042
     Dates: start: 20150409, end: 20150409
  23. ADVANTAN [Concomitant]
     Active Substance: CORTICOSTEROID NOS
     Dosage: 15 G, UNK
     Route: 061
     Dates: start: 20150629
  24. DOCETAXEL. [Concomitant]
     Active Substance: DOCETAXEL
     Dosage: 127.5 MG, UNK
     Route: 042
     Dates: start: 20150430, end: 20150430
  25. DENOGAN [Concomitant]
     Dosage: 1 G, UNK
     Route: 042
     Dates: start: 20150415, end: 20150416
  26. TAZOPERAN [Concomitant]
     Dosage: 4.5 G, UNK
     Route: 042
     Dates: start: 20150415, end: 20150419
  27. FREEPAN                            /00008702/ [Concomitant]
     Dosage: 20 MG, UNK
     Route: 042
     Dates: start: 20150417, end: 20150419
  28. LEGALON [Concomitant]
     Active Substance: MILK THISTLE
     Dosage: 140 MG, UNK
     Route: 048
     Dates: start: 20150510, end: 20150511
  29. DOCETAXEL. [Concomitant]
     Active Substance: DOCETAXEL
     Dosage: 129 MG, UNK
     Route: 042
     Dates: start: 20150409, end: 20150409
  30. DOCETAXEL. [Concomitant]
     Active Substance: DOCETAXEL
     Dosage: 110.29 MG, UNK
     Route: 042
     Dates: start: 20150611, end: 20150611
  31. TRIDOL [Concomitant]
     Dosage: 50 MG, UNK
     Route: 048
     Dates: start: 20150408, end: 20150415
  32. ALGIRON [Concomitant]
     Dosage: 5 MG, UNK
     Route: 042
     Dates: start: 20150415, end: 20150417
  33. MAGMIL [Concomitant]
     Active Substance: MAGNESIUM HYDROXIDE
     Dosage: 500 MG, UNK
     Route: 048
     Dates: start: 20150420, end: 20150504
  34. URSA [Concomitant]
     Dosage: 200 MG, UNK
     Route: 048
     Dates: start: 20150510, end: 20150511
  35. BACTROBAN [Concomitant]
     Active Substance: MUPIROCIN\MUPIROCIN CALCIUM
     Dosage: 20 MG, UNK
     Route: 061
     Dates: start: 20150706
  36. G-LASTA [Suspect]
     Active Substance: PEGFILGRASTIM
     Dosage: 6 MG, 1X/3WEEKS
     Route: 058
     Dates: start: 20150612
  37. DOXORUBICIN [Concomitant]
     Active Substance: DOXORUBICIN
     Dosage: 85 MG, UNK
     Route: 042
     Dates: start: 20150430, end: 20150430
  38. DOXORUBICIN [Concomitant]
     Active Substance: DOXORUBICIN
     Dosage: 73.53 MG, UNK
     Route: 042
     Dates: start: 20150611, end: 20150611
  39. DOXORUBICIN [Concomitant]
     Active Substance: DOXORUBICIN
     Dosage: 74.8 MG, UNK
     Route: 042
     Dates: start: 20150708, end: 20150708
  40. SANCUSO [Concomitant]
     Active Substance: GRANISETRON
     Dosage: 34.3 MG, UNK
     Route: 061
     Dates: start: 20150408
  41. ZIPAN                              /00033002/ [Concomitant]
     Dosage: 50 MG, UNK
     Route: 042
     Dates: start: 20150415, end: 20150415
  42. NESP [Concomitant]
     Active Substance: DARBEPOETIN ALFA
     Dosage: 120 MUG, UNK
     Route: 058
     Dates: start: 20150429

REACTIONS (1)
  - Neutropenia [Recovered/Resolved]

NARRATIVE: CASE EVENT DATE: 20150714
